FAERS Safety Report 7335713-5 (Version None)
Quarter: 2011Q1

REPORT INFORMATION
  Report Type: 
  Country: None (occurrence: None)
  Receive Date: 20110307
  Receipt Date: 20110114
  Transmission Date: 20110831
  Serious: Yes (Other)
  Sender: FDA-Public Use
  Company Number: B0694064A

PATIENT
  Sex: Male

DRUGS (4)
  1. URIEF [Concomitant]
     Indication: BENIGN PROSTATIC HYPERPLASIA
     Dosage: 4MG PER DAY
     Route: 048
  2. AVOLVE [Suspect]
     Indication: BENIGN PROSTATIC HYPERPLASIA
     Dosage: .5MG PER DAY
     Route: 048
     Dates: start: 20101001, end: 20110114
  3. DIOVAN [Concomitant]
     Indication: HYPERTENSION
     Dosage: 80MG PER DAY
     Route: 048
  4. LIPITOR [Concomitant]
     Dosage: 4MG PER DAY
     Route: 048

REACTIONS (3)
  - ECZEMA [None]
  - WHITE BLOOD CELL COUNT DECREASED [None]
  - PRURITUS [None]
